FAERS Safety Report 21963124 (Version 1)
Quarter: 2023Q1

REPORT INFORMATION
  Report Type: Spontaneous
  Country: US (occurrence: US)
  Receive Date: 20230207
  Receipt Date: 20230207
  Transmission Date: 20230418
  Serious: No
  Sender: FDA-Public Use
  Company Number: US-LUNDBECK-DKLU3057286

PATIENT
  Age: 17 Year
  Sex: Female
  Weight: 31.81 kg

DRUGS (1)
  1. SABRIL [Suspect]
     Active Substance: VIGABATRIN
     Indication: Seizure
     Route: 048
     Dates: start: 2013

REACTIONS (1)
  - Adverse reaction [Recovering/Resolving]
